FAERS Safety Report 16698457 (Version 1)
Quarter: 2019Q3

REPORT INFORMATION
  Report Type: Spontaneous
  Country: US (occurrence: US)
  Receive Date: 20190627
  Receipt Date: 20190627
  Transmission Date: 20191004
  Serious: Yes (Hospitalization)
  Sender: FDA-Public Use
  Company Number: None

PATIENT
  Age: 58 Year
  Sex: Male
  Weight: 94.8 kg

DRUGS (3)
  1. 5-FLUUROURACIL (5-FU) [Suspect]
     Active Substance: FLUOROURACIL
     Dates: end: 20190404
  2. ELOXATIN [Concomitant]
     Active Substance: OXALIPLATIN
     Dates: end: 20190402
  3. LEUCOVORIN CALCIUM. [Suspect]
     Active Substance: LEUCOVORIN CALCIUM
     Dates: end: 20190502

REACTIONS (7)
  - Abdominal pain [None]
  - Pain [None]
  - Stress ulcer [None]
  - Post procedural complication [None]
  - Chest pain [None]
  - Flatulence [None]
  - Peptic ulcer [None]

NARRATIVE: CASE EVENT DATE: 20190614
